FAERS Safety Report 19893642 (Version 1)
Quarter: 2021Q3

REPORT INFORMATION
  Report Type: Spontaneous
  Country: NL (occurrence: NL)
  Receive Date: 20210928
  Receipt Date: 20210928
  Transmission Date: 20211014
  Serious: Yes (Death, Hospitalization, Other)
  Sender: FDA-Public Use
  Company Number: NL-MYLANLABS-2021M1066732

PATIENT
  Age: 47 Year
  Sex: Female

DRUGS (4)
  1. FILGRASTIM [Suspect]
     Active Substance: FILGRASTIM
     Indication: PRODUCT USED FOR UNKNOWN INDICATION
     Dosage: 300 MICROGRAM, QD
     Route: 058
  2. METOCLOPRAMIDE. [Concomitant]
     Active Substance: METOCLOPRAMIDE
     Dosage: 20 MG, 3X/DAY (SUPPOSITORY)
  3. PACLITAXEL. [Suspect]
     Active Substance: PACLITAXEL
     Indication: BREAST CANCER
     Dosage: 175 MILLIGRAM/SQ. METER
     Route: 042
  4. CLODRONIC ACID [Suspect]
     Active Substance: CLODRONIC ACID
     Indication: PRODUCT USED FOR UNKNOWN INDICATION
     Dosage: 1600 MILLIGRAM, QD (400 MG, 4X/DAY)
     Route: 048

REACTIONS (2)
  - Coma hepatic [Fatal]
  - Metabolic encephalopathy [Fatal]
